FAERS Safety Report 21347622 (Version 1)
Quarter: 2022Q3

REPORT INFORMATION
  Report Type: Spontaneous
  Country: IT (occurrence: IT)
  Receive Date: 20220919
  Receipt Date: 20220919
  Transmission Date: 20221027
  Serious: Yes (Other)
  Sender: FDA-Public Use
  Company Number: None

PATIENT

DRUGS (6)
  1. RITUXIMAB [Suspect]
     Active Substance: RITUXIMAB
     Indication: Thrombotic thrombocytopenic purpura
     Dosage: 375 MILLIGRAM(S)/SQ. METER, ON DAY+1,+4,+8 AND +11
  2. SOLIRIS [Suspect]
     Active Substance: ECULIZUMAB
     Indication: Off label use
     Dosage: 1200 MG, UNK
  3. SOLIRIS [Suspect]
     Active Substance: ECULIZUMAB
     Indication: Thrombotic thrombocytopenic purpura
     Dosage: 1200 MG, Q2W
  4. SOLIRIS [Suspect]
     Active Substance: ECULIZUMAB
     Dosage: 900 MG, QW FOR 4 DOSES
  5. VINCRISTINE [Suspect]
     Active Substance: VINCRISTINE
     Indication: Thrombotic thrombocytopenic purpura
     Dosage: UNK, DAY+1,+5,+9,+13
  6. METHYLPREDNISOLONE [Suspect]
     Active Substance: METHYLPREDNISOLONE
     Indication: Thrombotic thrombocytopenic purpura
     Dosage: UNK

REACTIONS (5)
  - Cytomegalovirus infection reactivation [Recovered/Resolved]
  - Staphylococcal sepsis [Recovered/Resolved]
  - Intentional product use issue [Unknown]
  - Off label use [Unknown]
  - Off label use [Unknown]
